FAERS Safety Report 11934904 (Version 1)
Quarter: 2016Q1

REPORT INFORMATION
  Report Type: Report from Study
  Country: US (occurrence: US)
  Receive Date: 20160121
  Receipt Date: 20160121
  Transmission Date: 20160526
  Serious: Yes (Other)
  Sender: FDA-Public Use
  Company Number: US-AMGEN-USASP2015105294

PATIENT
  Age: 67 Year
  Sex: Female

DRUGS (1)
  1. PROLIA [Suspect]
     Active Substance: DENOSUMAB
     Indication: PRODUCT USED FOR UNKNOWN INDICATION
     Dosage: UNK
     Route: 065
     Dates: start: 20141208

REACTIONS (14)
  - Gingival bleeding [Recovering/Resolving]
  - Pain in jaw [Recovered/Resolved]
  - Lip swelling [Unknown]
  - Oral pain [Not Recovered/Not Resolved]
  - Aphthous ulcer [Unknown]
  - Stomatitis [Unknown]
  - Masticatory pain [Unknown]
  - Activities of daily living impaired [Unknown]
  - Pemphigoid [Not Recovered/Not Resolved]
  - Swollen tongue [Unknown]
  - Gingival recession [Unknown]
  - Mouth swelling [Unknown]
  - Pulpitis dental [Recovered/Resolved]
  - Bone swelling [Unknown]

NARRATIVE: CASE EVENT DATE: 2015
